FAERS Safety Report 10763237 (Version 1)
Quarter: 2015Q1

REPORT INFORMATION
  Report Type: Report from Study
  Country: AR (occurrence: AR)
  Receive Date: 20150204
  Receipt Date: 20150204
  Transmission Date: 20150721
  Serious: Yes (Hospitalization)
  Sender: FDA-Public Use
  Company Number: PHHY2015AR013641

PATIENT
  Sex: Female

DRUGS (1)
  1. TRILEPTAL [Suspect]
     Active Substance: OXCARBAZEPINE
     Indication: SYNCOPE
     Dosage: 2 DF, UNK (TOOK 2 OR 1.5)
     Route: 065

REACTIONS (5)
  - Nervous system disorder [Unknown]
  - Ligament rupture [Unknown]
  - Product use issue [Unknown]
  - Feeling abnormal [Unknown]
  - Tendon rupture [Unknown]

NARRATIVE: CASE EVENT DATE: 2013
